FAERS Safety Report 15431152 (Version 2)
Quarter: 2018Q4

REPORT INFORMATION
  Report Type: Report from Study
  Country: US (occurrence: US)
  Receive Date: 20180926
  Receipt Date: 20181001
  Transmission Date: 20190204
  Serious: Yes (Hospitalization)
  Sender: FDA-Public Use
  Company Number: US-GILEAD-2018-0365153

PATIENT
  Age: 72 Year
  Sex: Female

DRUGS (1)
  1. AMBRISENTAN [Suspect]
     Active Substance: AMBRISENTAN
     Indication: PULMONARY HYPERTENSION
     Dosage: 5 MG, QD
     Route: 065
     Dates: start: 20170823

REACTIONS (9)
  - Joint swelling [Unknown]
  - Dyspnoea [Unknown]
  - Heart rate increased [Unknown]
  - Respiratory tract infection [Not Recovered/Not Resolved]
  - Chest discomfort [Unknown]
  - Blood pressure increased [Unknown]
  - Dizziness [Unknown]
  - Peripheral swelling [Unknown]
  - Cough [Not Recovered/Not Resolved]

NARRATIVE: CASE EVENT DATE: 20180910
